FAERS Safety Report 8103511-0 (Version None)
Quarter: 2012Q1

REPORT INFORMATION
  Report Type: 
  Country: None (occurrence: None)
  Receive Date: 20120201
  Receipt Date: 20120125
  Transmission Date: 20120608
  Serious: Yes (Hospitalization, Other)
  Sender: FDA-Public Use
  Company Number: PHHY2012CH006539

PATIENT
  Age: 9 Year
  Sex: Female
  Weight: 27 kg

DRUGS (5)
  1. EXJADE [Suspect]
     Indication: SICKLE CELL ANAEMIA WITH CRISIS
     Dosage: 500 MG, DAILY ON EVEN DAYS
     Route: 048
     Dates: start: 20100101
  2. EXJADE [Suspect]
     Dosage: 100 MG, DAILY ON ODD DAYS
     Route: 048
     Dates: start: 20100101, end: 20120103
  3. PENICILLIN V [Concomitant]
     Indication: SICKLE CELL ANAEMIA WITH CRISIS
     Route: 048
  4. HYDROXYUREA [Concomitant]
  5. FOLIC ACID [Concomitant]
     Dosage: 2.5 MG, DAILY (TWO WEEKS PER MONTH)
     Route: 048

REACTIONS (13)
  - METABOLIC ACIDOSIS [None]
  - CHOLESTASIS [None]
  - TOXICITY TO VARIOUS AGENTS [None]
  - BACK PAIN [None]
  - ASTHENIA [None]
  - SOMNOLENCE [None]
  - CYTOLYTIC HEPATITIS [None]
  - VOMITING [None]
  - HYPERAMMONAEMIA [None]
  - ABDOMINAL PAIN [None]
  - HYPERKALAEMIA [None]
  - ALTERED STATE OF CONSCIOUSNESS [None]
  - SICKLE CELL ANAEMIA WITH CRISIS [None]
